FAERS Safety Report 7274518-0 (Version None)
Quarter: 2011Q1

REPORT INFORMATION
  Report Type: 
  Country: None (occurrence: None)
  Receive Date: 20110201
  Receipt Date: 20110201
  Transmission Date: 20110831
  Serious: Yes (Hospitalization, Other)
  Sender: FDA-Public Use
  Company Number: None

PATIENT
  Sex: Male
  Weight: 4.91 kg

DRUGS (5)
  1. OCTREOTIDE ACETATE [Suspect]
     Indication: CHYLOTHORAX
     Dosage: 1MCG-4MCG /KG/HR CONTINUOUS INFUSION IV
     Route: 042
     Dates: start: 20101210, end: 20110122
  2. TPN/INTRALIPIDS [Concomitant]
  3. CHLOROTHIAZIDE IV [Concomitant]
  4. MORPHINE [Concomitant]
  5. LORAZEPAM [Concomitant]

REACTIONS (1)
  - NECROTISING COLITIS [None]
